FAERS Safety Report 10297497 (Version 2)
Quarter: 2014Q3

REPORT INFORMATION
  Report Type: Spontaneous
  Country: JP (occurrence: JP)
  Receive Date: 20140711
  Receipt Date: 20140818
  Transmission Date: 20150326
  Serious: Yes (Hospitalization)
  Sender: FDA-Public Use
  Company Number: JP-JNJFOC-20140703979

PATIENT
  Age: 76 Year
  Sex: Male
  Weight: 47 kg

DRUGS (8)
  1. REMINYL [Suspect]
     Active Substance: GALANTAMINE
     Indication: PROGRESSIVE SUPRANUCLEAR PALSY
     Route: 048
     Dates: start: 20140626, end: 20140630
  2. REMINYL [Suspect]
     Active Substance: GALANTAMINE
     Indication: PROGRESSIVE SUPRANUCLEAR PALSY
     Route: 048
     Dates: start: 2012, end: 20140625
  3. LEVODOPA-CARBIDOPA [Concomitant]
     Active Substance: CARBIDOPA\LEVODOPA
     Indication: PRODUCT USED FOR UNKNOWN INDICATION
     Route: 048
     Dates: start: 20140809
  4. MENESIT [Concomitant]
     Active Substance: CARBIDOPA\LEVODOPA
     Indication: PRODUCT USED FOR UNKNOWN INDICATION
     Route: 048
     Dates: end: 20140721
  5. REMINYL [Suspect]
     Active Substance: GALANTAMINE
     Indication: PROGRESSIVE SUPRANUCLEAR PALSY
     Route: 048
     Dates: start: 20140701, end: 20140704
  6. LEVODOPA-CARBIDOPA [Concomitant]
     Active Substance: CARBIDOPA\LEVODOPA
     Indication: PRODUCT USED FOR UNKNOWN INDICATION
     Route: 048
     Dates: start: 20140804, end: 20140808
  7. LEVODOPA-CARBIDOPA [Concomitant]
     Active Substance: CARBIDOPA\LEVODOPA
     Indication: PRODUCT USED FOR UNKNOWN INDICATION
     Route: 048
     Dates: start: 20140729, end: 20140803
  8. LEVODOPA-CARBIDOPA [Concomitant]
     Active Substance: CARBIDOPA\LEVODOPA
     Indication: PRODUCT USED FOR UNKNOWN INDICATION
     Route: 048
     Dates: start: 20140722, end: 20140728

REACTIONS (3)
  - Gait disturbance [Recovering/Resolving]
  - Muscle rigidity [Recovering/Resolving]
  - Off label use [Unknown]

NARRATIVE: CASE EVENT DATE: 2013
